FAERS Safety Report 24428296 (Version 2)
Quarter: 2024Q4

REPORT INFORMATION
  Report Type: Spontaneous
  Country: AU (occurrence: AU)
  Receive Date: 20241011
  Receipt Date: 20241203
  Transmission Date: 20250114
  Serious: No
  Sender: PFIZER
  Company Number: AU-PFIZER INC-202400269298

PATIENT
  Age: 52 Year
  Sex: Male

DRUGS (1)
  1. ENBREL [Suspect]
     Active Substance: ETANERCEPT
     Dosage: 50 MG

REACTIONS (1)
  - Device delivery system issue [Unknown]
